FAERS Safety Report 9025090 (Version 1)
Quarter: 2013Q1

REPORT INFORMATION
  Report Type: Spontaneous
  Country: US (occurrence: US)
  Receive Date: 20130121
  Receipt Date: 20130121
  Transmission Date: 20140127
  Serious: Yes (Death)
  Sender: FDA-Public Use
  Company Number: US-JNJFOC-20130106600

PATIENT
  Age: 65 Year
  Sex: Male

DRUGS (9)
  1. ACETAMINOPHEN/CODEINE [Suspect]
     Indication: SUICIDE ATTEMPT
     Route: 048
  2. SIMVASTATIN [Suspect]
     Indication: SUICIDE ATTEMPT
     Route: 048
  3. METOPROLOL [Suspect]
     Indication: SUICIDE ATTEMPT
     Route: 048
  4. CALCIUM ANTAGONISTS [Suspect]
     Indication: SUICIDE ATTEMPT
     Route: 048
  5. GABAPENTIN [Suspect]
     Indication: SUICIDE ATTEMPT
     Route: 048
  6. QUETIAPINE [Suspect]
     Indication: SUICIDE ATTEMPT
     Route: 048
  7. ESCITALOPRAM [Suspect]
     Indication: SUICIDE ATTEMPT
     Route: 048
  8. BENZODIAZEPINE NOS [Suspect]
     Indication: SUICIDE ATTEMPT
     Route: 048
  9. ESZOPICLONE [Suspect]
     Indication: SUICIDE ATTEMPT
     Route: 048

REACTIONS (2)
  - Toxicity to various agents [Fatal]
  - Completed suicide [None]
